FAERS Safety Report 8035136 (Version 1)
Quarter: 2020Q3

REPORT INFORMATION
  Report Type: Spontaneous
  Country: DE (occurrence: None)
  Receive Date: 20011228
  Receipt Date: 20011228
  Transmission Date: 20201104
  Serious: Yes (Life-Threatening, Hospitalization)
  Sender: FDA-Public Use
  Company Number: PHNU2001DE02940

PATIENT
  Age: 21 Year
  Sex: Male
  Weight: 60 kg

DRUGS (49)
  1. SUCRALFATE. [Suspect]
     Active Substance: SUCRALFATE
     Indication: PROPHYLAXIS
     Dosage: 5 ML, 6QD, ORAL
     Route: 048
  2. ASPIRIN LYSINE [Suspect]
     Active Substance: ASPIRIN LYSINE
     Indication: PAIN
     Dosage: 1 DF, QD, INTRAVENOUS
     Route: 042
     Dates: start: 20001220, end: 20001220
  3. PROMAZINE [Suspect]
     Active Substance: PROMAZINE
     Indication: AGITATION
     Dosage: 3 DF/DAY, INTRAVENOUS
     Route: 042
     Dates: start: 20001213, end: 20001213
  4. PHENOBARBITAL SODIUM. [Suspect]
     Active Substance: PHENOBARBITAL SODIUM
     Indication: EPILEPSY
     Dosage: SEE IMAGE
     Route: 042
     Dates: end: 20001220
  5. KONAKION [Suspect]
     Active Substance: PHYTONADIONE
     Indication: VITAMIN K DEFICIENCY
     Dosage: 1 DF, QD, INTRAVENOUS
     Route: 042
     Dates: start: 20001127, end: 20001208
  6. DIMETHICONE. [Suspect]
     Active Substance: DIMETHICONE
     Indication: FLATULENCE
     Dosage: 2 ML, 6QD, ORAL
     Route: 048
     Dates: start: 20001210
  7. ADDEL N (ZINC CHLORIDE, SELENIDE SODIUM, MANGANESE CHLORIDE, FERROUS CHLORIDE, COPPER CHLORIDE, CHRO [Concomitant]
  8. THEOPHYLLINE TABLET [Concomitant]
  9. GLUCOSE SOLUTION FOR INFUSION [Concomitant]
  10. CALCIUM SOLUTION FOR INJECTION [Concomitant]
  11. AMBROXOL HYDROCHLORIDE [Suspect]
     Active Substance: AMBROXOL HYDROCHLORIDE
     Dosage: 3 G, QD, INTRAVENOUS
     Route: 042
  12. MIDAZOLAM HYDROCHLORIDE. [Suspect]
     Active Substance: MIDAZOLAM HYDROCHLORIDE
     Indication: PAIN
     Dosage: SEE IMAGE
     Route: 042
     Dates: end: 20001220
  13. PYRIDOSTIGMINE BROMIDE. [Suspect]
     Active Substance: PYRIDOSTIGMINE BROMIDE
     Indication: ATONIC URINARY BLADDER
     Dosage: 30 MG, QD, INTRAVENOUS
     Route: 042
     Dates: start: 20001205, end: 20001217
  14. PANCURONIUM BROMIDE. [Suspect]
     Active Substance: PANCURONIUM BROMIDE
     Indication: HYPOTONIA
     Dosage: SEE IMAGE
     Route: 042
     Dates: start: 20001205
  15. PANTHENOL [Suspect]
     Active Substance: PANTHENOL
     Indication: PANTOTHENIC ACID DEFICIENCY
     Dosage: 4 DF, QID, INTRAVENOUS
     Route: 042
  16. OSMOFUNDIN (SODIUM ACETATE TRIHYDRATE) [Concomitant]
  17. ARTERENOL (NOREPINEPHRINE HYDROCHLORIDE) SOLUTION FOR INJECTION [Concomitant]
  18. INSULIN HUMAN NOS [Suspect]
     Active Substance: INSULIN HUMAN
     Indication: METABOLIC DISORDER
     Dosage: SEE IMAGE
     Route: 042
  19. FUROSEMIDE\TRIAMTERENE [Suspect]
     Active Substance: FUROSEMIDE\TRIAMTERENE
     Indication: HYPERTENSION
     Dosage: SEE IMAGE
     Route: 048
     Dates: start: 20001206
  20. PREDNISOLONE SODIUM SUCCINATE [Suspect]
     Active Substance: PREDNISOLONE SODIUM SUCCINATE
     Indication: PROPHYLAXIS
     Dosage: 25 MG, BID, INTRAVENOUS
     Route: 042
  21. PIPERACILLIN SODIUM [Suspect]
     Active Substance: PIPERACILLIN SODIUM
     Indication: PROPHYLAXIS
     Dosage: 3 G, BID, INTRAVENOUS
     Route: 042
     Dates: start: 20001208, end: 20001215
  22. HYDERGINE [Suspect]
     Active Substance: ERGOLOID MESYLATES
     Indication: POST CONCUSSION SYNDROME
     Dosage: SEE IMAGE
     Route: 042
     Dates: end: 20001220
  23. FENTANYL. [Suspect]
     Active Substance: FENTANYL
     Indication: PAIN
     Dosage: 1.5MG/DAY, INTRAVENOUS
     Route: 042
     Dates: start: 20001209, end: 20001214
  24. AMINO ACIDS [Suspect]
     Active Substance: AMINO ACIDS, SOURCE UNSPECIFIED
     Indication: PARENTERAL NUTRITION
     Dosage: 1 DF, QD, INTRAVENOUS
     Route: 042
     Dates: start: 20001201, end: 20001212
  25. VIOXX [Suspect]
     Active Substance: ROFECOXIB
     Indication: ARTHRALGIA
     Dosage: SEE IMAGE
     Route: 048
     Dates: end: 20001224
  26. INDOMETACIN TABLET [Concomitant]
  27. TALINOLOL [Suspect]
     Active Substance: TALINOLOL
     Indication: ARRHYTHMIA
     Dosage: SEE IMAGE
     Route: 048
     Dates: start: 20001127
  28. NIMOTOP [Suspect]
     Active Substance: NIMODIPINE
     Indication: POST CONCUSSION SYNDROME
     Dosage: 1 DF, QD, INTRAVENOUS
     Route: 042
     Dates: start: 20001127, end: 20001212
  29. PARACETAMOL [Suspect]
     Active Substance: ACETAMINOPHEN
     Indication: PAIN
     Dosage: 1 G, ONCE/SINGE, ORAL
     Route: 048
     Dates: start: 20001208, end: 20001208
  30. AMPHOTERICIN B. [Suspect]
     Active Substance: AMPHOTERICIN B
     Indication: INFECTION
     Dosage: 2 ML, 6QD, ORAL
     Route: 048
     Dates: start: 20001208, end: 20001219
  31. METOCLOPRAMIDE HYDROCHLORIDE. [Suspect]
     Active Substance: METOCLOPRAMIDE HYDROCHLORIDE
     Indication: NAUSEA
     Dosage: 1 DF, TID, INTRAVENOUS
     Route: 042
     Dates: start: 20001223
  32. DIFLUCAN [Suspect]
     Active Substance: FLUCONAZOLE
     Dosage: 80 MG/DAY, ORAL
     Route: 048
     Dates: start: 20001218, end: 20001223
  33. EUFIBRON SUPPOSITORY [Concomitant]
  34. TREGOR (AMANTADINE SULFATE) SOLUTION FOR INFUSION [Concomitant]
  35. CLONIDINE HYDROCHLORIDE. [Suspect]
     Active Substance: CLONIDINE HYDROCHLORIDE
     Indication: AGITATION
     Dosage: 1.05 MG/DAY, ORAL
     Route: 048
     Dates: start: 20001220
  36. INTRALIPID [Suspect]
     Active Substance: EGG PHOSPHOLIPIDS\GLYCERIN\SOYBEAN OIL
     Indication: PARENTERAL NUTRITION
     Dosage: 1 DF, QD, INTRAVENOUS
     Route: 042
     Dates: start: 20001204, end: 20001212
  37. METAMIZOLE SODIUM [Suspect]
     Active Substance: METAMIZOLE SODIUM
     Indication: PAIN
     Dosage: 1 DF, ONCE/SINGLE, INTRAVENOUS
     Route: 042
     Dates: start: 20001217, end: 20001217
  38. HEPARIN [Suspect]
     Active Substance: HEPARIN SODIUM
     Indication: THROMBOSIS PROPHYLAXIS
     Dosage: SEE IMAGE
     Route: 042
     Dates: start: 20001201, end: 20001205
  39. DIMETHINDENE MALEATE [Suspect]
     Active Substance: DIMETHINDENE MALEATE
     Indication: PRURITUS
     Dosage: SEE IMAGE
     Route: 042
     Dates: start: 20001223
  40. SULBACTAM SODIUM [Suspect]
     Active Substance: SULBACTAM SODIUM
     Indication: PROPHYLAXIS
     Dosage: 1 G, TID, INTRAVENOUS
     Route: 042
     Dates: start: 20001220, end: 20001224
  41. FUROSEMIDE. [Suspect]
     Active Substance: FUROSEMIDE
     Indication: HYPERTENSION
     Dosage: SEE IMAGE
     Route: 042
     Dates: start: 20001128, end: 20001130
  42. AMINOPHYLLINE. [Suspect]
     Active Substance: AMINOPHYLLINE
     Indication: OBSTRUCTIVE AIRWAYS DISORDER
     Dosage: SEE IMAGE
     Route: 048
     Dates: end: 20001223
  43. NORMABRAIN SOLUTION FOR INFUSION [Concomitant]
  44. LACTULOSE. [Suspect]
     Active Substance: LACTULOSE
     Indication: CONSTIPATION
     Dosage: .5 ML, TID, ORAL
     Route: 048
     Dates: start: 20001127, end: 20001223
  45. KETAMINE HYDROCHLORIDE. [Suspect]
     Active Substance: KETAMINE HYDROCHLORIDE
     Indication: PAIN
     Dosage: 3 G, QD, INTRAVENOUS
     Route: 042
     Dates: start: 20001127, end: 20001208
  46. DOPEXAMINE HYDROCHLORIDE. [Suspect]
     Active Substance: DOPEXAMINE HYDROCHLORIDE
     Indication: CARDIAC FAILURE
     Dosage: 100 MG, QD, INTRAVENOUS
     Route: 042
     Dates: start: 20001127, end: 20001203
  47. VITAMINS [Suspect]
     Active Substance: VITAMINS
     Indication: PARENTERAL NUTRITION
     Dosage: 1 DF, QD, INTRAVENOUS
     Route: 042
     Dates: start: 20001224
  48. VITAMINS [Suspect]
     Active Substance: VITAMINS
     Indication: PARENTERAL NUTRITION
     Dosage: 1 DF, QD, INTRAVENOUS
     Route: 042
     Dates: start: 20001224
  49. TPN [Suspect]
     Active Substance: AMINO ACIDS\DEXTROSE\ELECTROLYTES NOS\SOYBEAN OIL
     Indication: ELECTROLYTE IMBALANCE
     Dosage: 1 DF, QD, INTRAVENOUS
     Route: 042
     Dates: start: 20001216

REACTIONS (1)
  - Stevens-Johnson syndrome [None]

NARRATIVE: CASE EVENT DATE: 20001222
